FAERS Safety Report 18142952 (Version 1)
Quarter: 2020Q3

REPORT INFORMATION
  Report Type: Spontaneous
  Country: US (occurrence: US)
  Receive Date: 20200813
  Receipt Date: 20200813
  Transmission Date: 20201103
  Serious: No
  Sender: FDA-Public Use
  Company Number: NVSC2020US223155

PATIENT
  Age: 72 Year
  Sex: Male

DRUGS (2)
  1. VOLTAREN [Suspect]
     Active Substance: DICLOFENAC SODIUM
     Dosage: UNK
     Route: 065
     Dates: start: 20200702, end: 20200803
  2. VOLTAREN [Suspect]
     Active Substance: DICLOFENAC SODIUM
     Indication: ARTHRITIS
     Dosage: UNK
     Route: 065
     Dates: start: 20200702, end: 20200803

REACTIONS (11)
  - Rash [Unknown]
  - Product use issue [Unknown]
  - Lip swelling [Unknown]
  - Therapeutic product effect incomplete [Unknown]
  - Acne [Unknown]
  - Diarrhoea [Unknown]
  - Nausea [Unknown]
  - Adverse drug reaction [Unknown]
  - Malaise [Unknown]
  - Abdominal pain upper [Unknown]
  - Vomiting [Unknown]
